FAERS Safety Report 8531174-9 (Version None)
Quarter: 2012Q3

REPORT INFORMATION
  Report Type: 
  Country: None (occurrence: None)
  Receive Date: 20120723
  Receipt Date: 20120709
  Transmission Date: 20120928
  Serious: Yes (Hospitalization, Other)
  Sender: FDA-Public Use
  Company Number: DE-ELI_LILLY_AND_COMPANY-DE201202003954

PATIENT
  Age: 48 Year
  Sex: Female

DRUGS (5)
  1. HALOPERIDOL [Concomitant]
     Dosage: 2 MG, UNK
  2. LORAZEPAM [Concomitant]
     Dosage: 4.5 MG, QD
  3. LORAZEPAM [Concomitant]
     Dosage: 3 MG, QD
  4. HALOPERIDOL [Concomitant]
     Dosage: 5 MG, UNK
  5. OLANZAPINE [Suspect]
     Dosage: 10 MG, SINGLE

REACTIONS (1)
  - HYPOTHERMIA [None]
